FAERS Safety Report 9098228 (Version 1)
Quarter: 2013Q1

REPORT INFORMATION
  Report Type: Spontaneous
  Country: US (occurrence: US)
  Receive Date: 20130213
  Receipt Date: 20130213
  Transmission Date: 20140127
  Serious: Yes (Other)
  Sender: FDA-Public Use
  Company Number: US-JNJFOC-20130110657

PATIENT
  Sex: Male

DRUGS (1)
  1. VISINE-A EYE ALLERGY RELIEF [Suspect]
     Indication: PRODUCT USED FOR UNKNOWN INDICATION
     Route: 047

REACTIONS (4)
  - Aneurysm [Unknown]
  - Visual acuity reduced [Unknown]
  - Mydriasis [Unknown]
  - Product label issue [Unknown]
